FAERS Safety Report 9363677 (Version 3)
Quarter: 2013Q3

REPORT INFORMATION
  Report Type: Report from Study
  Country: US (occurrence: US)
  Receive Date: 20130624
  Receipt Date: 20130709
  Transmission Date: 20140515
  Serious: Yes (Other)
  Sender: FDA-Public Use
  Company Number: US-CELGENEUS-163-21880-13062397

PATIENT
  Age: 67 Year
  Sex: Female
  Weight: 67.7 kg

DRUGS (8)
  1. REVLIMID [Suspect]
     Indication: CHRONIC LYMPHOCYTIC LEUKAEMIA
     Dosage: 5 MILLIGRAM
     Route: 048
     Dates: start: 20110124
  2. LEVOTHYROXINE [Concomitant]
     Indication: HYPOTHYROIDISM
     Dosage: 125 MICROGRAM
     Route: 048
     Dates: start: 200207
  3. PRAMIPEXOLE [Concomitant]
     Indication: RESTLESS LEGS SYNDROME
     Dosage: 1 MILLIGRAM
     Route: 048
     Dates: start: 20031118
  4. ESTROGEN [Concomitant]
     Indication: MENOPAUSE
     Dosage: .125 MILLIGRAM
     Route: 048
     Dates: start: 197605
  5. OMEPRAZOLE [Concomitant]
     Indication: REFLUX GASTRITIS
     Dosage: 20 MILLIGRAM
     Route: 048
     Dates: start: 2009
  6. ALLOPURINOL [Concomitant]
     Indication: PROPHYLAXIS
     Dosage: 300 MILLIGRAM
     Route: 048
     Dates: start: 20110121
  7. DEXAMETHASONE [Concomitant]
     Indication: SPLENOMEGALY
     Dosage: 4 MILLIGRAM
     Route: 048
     Dates: start: 20110307, end: 20110313
  8. TYLENOL NO. 3 [Concomitant]
     Indication: FIBROMYALGIA
     Dosage: 300/30MG
     Route: 048
     Dates: start: 19910406

REACTIONS (1)
  - Splenomegaly [Recovered/Resolved]
